FAERS Safety Report 24048185 (Version 1)
Quarter: 2024Q3

REPORT INFORMATION
  Report Type: Spontaneous
  Country: JP (occurrence: JP)
  Receive Date: 20240703
  Receipt Date: 20240703
  Transmission Date: 20241017
  Serious: Yes (Life-Threatening, Hospitalization, Other)
  Sender: ELI LILLY AND CO
  Company Number: JP-Merck Healthcare KGaA-2024034571

PATIENT
  Age: 68 Year
  Sex: Male
  Weight: 51 kg

DRUGS (20)
  1. ERBITUX [Suspect]
     Active Substance: CETUXIMAB
     Indication: Oropharyngeal cancer
     Dosage: 660.4 MG, UNKNOWN
     Route: 041
     Dates: start: 20240119, end: 20240119
  2. ERBITUX [Suspect]
     Active Substance: CETUXIMAB
     Dosage: 407.25 MG, UNKNOWN
     Route: 041
     Dates: start: 20240126, end: 20240216
  3. ERBITUX [Suspect]
     Active Substance: CETUXIMAB
     Dosage: 390 MG, UNKNOWN
     Route: 041
     Dates: start: 20240308, end: 20240315
  4. ERBITUX [Suspect]
     Active Substance: CETUXIMAB
     Dosage: 380 MG, UNKNOWN
     Route: 041
     Dates: start: 20240329, end: 20240419
  5. ERBITUX [Suspect]
     Active Substance: CETUXIMAB
     Dosage: UNK
     Route: 041
     Dates: end: 20240513
  6. PACLITAXEL [Concomitant]
     Active Substance: PACLITAXEL
     Indication: Oropharyngeal cancer
     Dosage: 100 MG, UNKNOWN
     Route: 065
     Dates: start: 20240119
  7. TACROLIMUS [Concomitant]
     Active Substance: TACROLIMUS
     Indication: Product used for unknown indication
     Dosage: GRACEPTOR CAPSULES 1MG, 3 CAPSULES DIVIDED INTO 1 DOSE
     Route: 048
  8. CELLCEPT [Concomitant]
     Active Substance: MYCOPHENOLATE MOFETIL
     Indication: Product used for unknown indication
     Dosage: CELLCEPT CAPSULE 250, 4 CAPSULES DIVIDED INTO 2 DOSES.
     Route: 048
  9. MEDROL [Concomitant]
     Active Substance: METHYLPREDNISOLONE
     Indication: Product used for unknown indication
     Dosage: MEDROL 2MG, 1 TABLET DIVIDED INTO 1 DOSE.
     Route: 048
  10. CARVEDILOL [Concomitant]
     Active Substance: CARVEDILOL
     Indication: Product used for unknown indication
     Dosage: 10 MG, UNKNOWN
     Route: 048
  11. RABEPRAZOLE SODIUM [Concomitant]
     Active Substance: RABEPRAZOLE SODIUM
     Indication: Product used for unknown indication
     Dosage: 10 MG, UNKNOWN
     Route: 048
  12. BIOFERMIN [BIFIDOBACTERIUM NOS] [Concomitant]
     Indication: Product used for unknown indication
     Dosage: 3 TABLETS DIVIDED INTO 3 DOSES.
     Route: 048
  13. CILOSTAZOL [Concomitant]
     Active Substance: CILOSTAZOL
     Indication: Product used for unknown indication
     Dosage: PLETAAL OD 50MG, 2 TABLETS DIVIDED INTO 2 DOSES.
  14. MINOCYCLINE HYDROCHLORIDE [Concomitant]
     Active Substance: MINOCYCLINE HYDROCHLORIDE
     Indication: Product used for unknown indication
     Dosage: MINOCYCLINE HYDROCHLORIDE 50MG, 2 TABLETS DIVIDED INTO 2 DOSES.
  15. CARBOHYDRATES\FATTY ACIDS\MINERALS\PROTEIN\VITAMINS [Concomitant]
     Active Substance: CARBOHYDRATES\FATTY ACIDS\MINERALS\PROTEIN\VITAMINS
     Indication: Product used for unknown indication
     Dosage: ENSURE H 250 ML, 2 CANS DIVIDED INTO 2 DOSES.
  16. INSULIN ASPART BS SOLOSTAR [Concomitant]
     Indication: Product used for unknown indication
     Dosage: 4 UNITS OF EACH IN MORNING, NOON, AND EARLY EVENING.
  17. LOPERAMIDE HYDROCHLORIDE [Concomitant]
     Active Substance: LOPERAMIDE HYDROCHLORIDE
     Indication: Diarrhoea
     Dosage: 1 MG, UNK
  18. GLYCOSAMINOGLYCANS [Concomitant]
     Active Substance: GLYCOSAMINOGLYCANS
     Indication: Product used for unknown indication
     Dosage: HIRUDOID LOTION 0.3% 25G, APPLIED TWICE DAILY.
     Route: 062
  19. LOCOID [Concomitant]
     Active Substance: HYDROCORTISONE BUTYRATE
     Indication: Product used for unknown indication
     Dosage: LOCOID CREAM 0.1% 5G, APPLIED TWICE DAILY.
     Route: 061
  20. SILVER SULFADIAZINE [Concomitant]
     Active Substance: SILVER SULFADIAZINE
     Indication: Product used for unknown indication
     Route: 061

REACTIONS (4)
  - Interstitial lung disease [Recovering/Resolving]
  - Application site necrosis [Unknown]
  - Depressed level of consciousness [Recovering/Resolving]
  - Oxygen saturation decreased [Recovering/Resolving]

NARRATIVE: CASE EVENT DATE: 20240510
